FAERS Safety Report 16288425 (Version 1)
Quarter: 2019Q2

REPORT INFORMATION
  Report Type: Spontaneous
  Country: US (occurrence: US)
  Receive Date: 20190509
  Receipt Date: 20190509
  Transmission Date: 20190711
  Serious: Yes (Hospitalization)
  Sender: FDA-Public Use
  Company Number: US-SUN PHARMACEUTICAL INDUSTRIES LTD-2018US-188922

PATIENT
  Age: 26 Year
  Sex: Female

DRUGS (2)
  1. HYDROXYCHLOROQUINE [Suspect]
     Active Substance: HYDROXYCHLOROQUINE
     Indication: PRODUCT USED FOR UNKNOWN INDICATION
     Dosage: 20 TABLETS (200 MG) WITH ETHANOL
     Route: 048
  2. ALCOHOL. [Suspect]
     Active Substance: ALCOHOL
     Indication: PRODUCT USED FOR UNKNOWN INDICATION
     Dosage: UNK
     Route: 065

REACTIONS (12)
  - Toxicity to various agents [Unknown]
  - Somnolence [Unknown]
  - Electrocardiogram QRS complex prolonged [Recovered/Resolved]
  - Hypoxia [Unknown]
  - Ventricular extrasystoles [Recovered/Resolved]
  - Drug screen false positive [Unknown]
  - Pulmonary alveolar haemorrhage [Unknown]
  - Systemic lupus erythematosus [Unknown]
  - Overdose [Unknown]
  - Mental status changes [Unknown]
  - Hypokalaemia [Unknown]
  - Blood pressure decreased [Recovered/Resolved]
